FAERS Safety Report 5150685-X (Version None)
Quarter: 2006Q4

REPORT INFORMATION
  Report Type: 
  Country: None (occurrence: None)
  Receive Date: 20061110
  Receipt Date: 20061110
  Transmission Date: 20070319
  Serious: Yes (Other)
  Sender: FDA-Public Use
  Company Number: None

PATIENT
  Age: 55 Year
  Sex: Female
  Weight: 56.6996 kg

DRUGS (1)
  1. ACETAMINOPHEN [Suspect]
     Indication: GINGIVAL PAIN
     Dosage: 2 CAPLETS  EVERY 6 HOURS
     Dates: start: 20061108, end: 20061108

REACTIONS (4)
  - MALAISE [None]
  - NAUSEA [None]
  - POOR QUALITY DRUG ADMINISTERED [None]
  - STOMACH DISCOMFORT [None]
